FAERS Safety Report 5227771-9 (Version None)
Quarter: 2007Q1

REPORT INFORMATION
  Report Type: 
  Country: None (occurrence: None)
  Receive Date: 20070202
  Receipt Date: 20070124
  Transmission Date: 20070707
  Serious: Yes (Other)
  Sender: FDA-Public Use
  Company Number: US-PFIZER INC-2007007401

PATIENT
  Sex: Female

DRUGS (1)
  1. CHANTIX [Suspect]
     Dates: start: 20070101, end: 20070123

REACTIONS (3)
  - ORAL MUCOSAL BLISTERING [None]
  - THROAT LESION [None]
  - TONGUE ERUPTION [None]
